FAERS Safety Report 10974563 (Version 3)
Quarter: 2015Q2

REPORT INFORMATION
  Report Type: Report from Study
  Country: NL (occurrence: NL)
  Receive Date: 20150401
  Receipt Date: 20150513
  Transmission Date: 20150821
  Serious: Yes (Other)
  Sender: FDA-Public Use
  Company Number: NL-BEH-2015049996

PATIENT

DRUGS (1)
  1. HAEMOCOMPLETTAN P [Suspect]
     Active Substance: FIBRINOGEN HUMAN
     Indication: CARDIAC OPERATION
     Dosage: START/STOP DATE: 12- TO 13-JAN-2015

REACTIONS (4)
  - Postoperative thoracic procedure complication [Unknown]
  - Post procedural swelling [Unknown]
  - Haemorrhage [Unknown]
  - Purulent discharge [Unknown]

NARRATIVE: CASE EVENT DATE: 2015
